FAERS Safety Report 21055399 (Version 1)
Quarter: 2022Q3

REPORT INFORMATION
  Report Type: Spontaneous
  Country: JP (occurrence: JP)
  Receive Date: 20220708
  Receipt Date: 20220708
  Transmission Date: 20221027
  Serious: Yes (Other)
  Sender: FDA-Public Use
  Company Number: JP-SA-2022SA261709

PATIENT
  Age: 76 Year
  Sex: Female

DRUGS (1)
  1. AFLIBERCEPT [Suspect]
     Active Substance: AFLIBERCEPT
     Indication: Macular oedema
     Dosage: 0.05 ML
     Route: 031

REACTIONS (5)
  - Hypotony of eye [Recovering/Resolving]
  - Chorioretinal folds [Recovered/Resolved]
  - Vitreous haemorrhage [Unknown]
  - Condition aggravated [Unknown]
  - Ciliary body disorder [Recovered/Resolved]
